FAERS Safety Report 16922335 (Version 2)
Quarter: 2019Q4

REPORT INFORMATION
  Report Type: Spontaneous
  Country: US (occurrence: US)
  Receive Date: 20191016
  Receipt Date: 20191018
  Transmission Date: 20200122
  Serious: No
  Sender: FDA-Public Use
  Company Number: US-JNJFOC-20191013348

PATIENT
  Sex: Female

DRUGS (1)
  1. WOMENS ROGAINE UNSCENTED [Suspect]
     Active Substance: MINOXIDIL
     Indication: ALOPECIA
     Dosage: AS DIRECTED ONCE PER DAY?PRODUCT LAST USE : AROUND THE FIRST WEEK OF SEPTEMBER
     Route: 061
     Dates: start: 20190113

REACTIONS (3)
  - Application site vesicles [Recovered/Resolved]
  - Drug hypersensitivity [Recovering/Resolving]
  - Application site exfoliation [Recovering/Resolving]

NARRATIVE: CASE EVENT DATE: 2019
